FAERS Safety Report 6639269-1 (Version None)
Quarter: 2010Q1

REPORT INFORMATION
  Report Type: 
  Country: None (occurrence: None)
  Receive Date: 20100317
  Receipt Date: 20100304
  Transmission Date: 20100710
  Serious: Yes (Other)
  Sender: FDA-Public Use
  Company Number: JP-ABBOTT-09P-087-0583110-00

PATIENT
  Sex: Female

DRUGS (12)
  1. HUMIRA [Suspect]
     Indication: RHEUMATOID ARTHRITIS
     Route: 058
     Dates: start: 20090604
  2. METHOTREXATE [Concomitant]
     Indication: RHEUMATOID ARTHRITIS
     Route: 048
  3. CARBAMAZEPINE [Concomitant]
     Indication: DRUG USE FOR UNKNOWN INDICATION
     Dosage: DAILY DOSE: 400 MILLIGRAMS
     Route: 048
  4. BROTIZOLAM [Concomitant]
     Indication: DRUG USE FOR UNKNOWN INDICATION
     Dosage: DAILY DOSE: 0.25 MILLIGRAMS
     Route: 048
  5. CLOTIAZEPAM [Concomitant]
     Indication: DRUG USE FOR UNKNOWN INDICATION
     Dosage: DAILY DOSE: 5 MILLIGRAMS
     Route: 048
  6. PREDNISOLONE [Concomitant]
     Indication: RHEUMATOID ARTHRITIS
     Dosage: DAILY DOSE: 8 MILLIGRAMS
     Route: 048
  7. GABAPENTIN [Concomitant]
     Indication: DRUG USE FOR UNKNOWN INDICATION
     Dosage: DAILY DOSE: 900 MILLIGRAMS
     Route: 048
  8. ISONIAZID [Concomitant]
     Indication: ANTIBIOTIC PROPHYLAXIS
  9. ALFACALCIDOL [Concomitant]
     Indication: DRUG USE FOR UNKNOWN INDICATION
  10. REBAMIPIDE [Concomitant]
     Indication: GASTRITIS PROPHYLAXIS
  11. DICLOFENAC SODIUM [Concomitant]
     Indication: RHEUMATOID ARTHRITIS
  12. RABEPRAZOLE SODIUM [Concomitant]
     Indication: GASTRITIS PROPHYLAXIS

REACTIONS (1)
  - DIZZINESS [None]
